FAERS Safety Report 25002511 (Version 2)
Quarter: 2025Q3

REPORT INFORMATION
  Report Type: Report from Study
  Country: US (occurrence: US)
  Receive Date: 20250224
  Receipt Date: 20250809
  Transmission Date: 20251020
  Serious: Yes (Other)
  Sender: ALEXION PHARMACEUTICALS
  Company Number: US-AstraZeneca-CH-00812044A

PATIENT
  Sex: Female

DRUGS (2)
  1. SOLIRIS [Suspect]
     Active Substance: ECULIZUMAB
     Route: 065
  2. MENINGOCOCCAL GROUP B VACCINE [Suspect]
     Active Substance: MENINGOCOCCAL GROUP B VACCINE
     Indication: Immunisation
     Route: 065

REACTIONS (3)
  - Blindness [Unknown]
  - Immunisation reaction [Unknown]
  - Eyelid ptosis [Unknown]
